FAERS Safety Report 4377940-5 (Version None)
Quarter: 2004Q2

REPORT INFORMATION
  Report Type: 
  Country: None (occurrence: None)
  Receive Date: 20040615
  Receipt Date: 20040615
  Transmission Date: 20050107
  Serious: Yes (Other)
  Sender: FDA-Public Use
  Company Number: None

PATIENT
  Sex: Female
  Weight: 76.2043 kg

DRUGS (2)
  1. EFFEXOR [Suspect]
     Indication: DEPRESSION
     Dosage: 1 DAY ORAL
     Route: 048
     Dates: start: 20030201, end: 20040612
  2. EFFEXOR [Suspect]
     Indication: PREMENSTRUAL SYNDROME
     Dosage: 1 DAY ORAL
     Route: 048
     Dates: start: 20030201, end: 20040612

REACTIONS (4)
  - DIZZINESS [None]
  - FATIGUE [None]
  - NAUSEA [None]
  - SENSORY DISTURBANCE [None]
